FAERS Safety Report 6070301-2 (Version None)
Quarter: 2009Q1

REPORT INFORMATION
  Report Type: 
  Country: None (occurrence: None)
  Receive Date: 20090209
  Receipt Date: 20090127
  Transmission Date: 20090719
  Serious: Yes (Hospitalization, Other)
  Sender: FDA-Public Use
  Company Number: US-CVT-080109

PATIENT

DRUGS (16)
  1. RANEXA [Suspect]
     Indication: ANGINA PECTORIS
     Dosage: 500 MG, BID
     Route: 048
     Dates: start: 20080903, end: 20081116
  2. RANEXA [Suspect]
     Dosage: 1000 MG, BID
     Route: 048
     Dates: start: 20081117, end: 20081120
  3. LISINOPRIL /00894001/ [Concomitant]
     Indication: HYPERTENSION
     Dosage: 10 MG, BID
  4. LISINOPRIL /00894001/ [Concomitant]
     Indication: CORONARY ARTERY DISEASE
  5. LASIX [Concomitant]
     Indication: HYPERTENSION
     Dosage: 40 MG, QD
  6. BISOPROLOL /00802601/ [Concomitant]
     Indication: HYPERTENSION
     Dosage: 5 MG, BID
  7. BISOPROLOL /00802601/ [Concomitant]
     Indication: CORONARY ARTERY DISEASE
  8. BISOPROLOL /00802601/ [Concomitant]
     Indication: ANGINA PECTORIS
  9. COUMADIN [Concomitant]
     Indication: ATRIAL FIBRILLATION
     Dosage: UNK, UNKNOWN
  10. ADVAIR DISKUS 100/50 [Concomitant]
     Indication: ASTHMA
     Dosage: 1 PUFF, BID
  11. ATROVENT [Concomitant]
     Indication: ASTHMA
     Dosage: 2 PUFF, BID
  12. XOPENEX [Concomitant]
     Indication: ASTHMA
     Dosage: 1.25 MG, TID
  13. NITROGLYCERIN [Concomitant]
     Indication: DRUG USE FOR UNKNOWN INDICATION
     Dosage: 0.2 MG, Q1HR
     Route: 062
  14. OMEGA-3 TRIGLYCERIDES [Concomitant]
     Indication: BLOOD CHOLESTEROL INCREASED
     Dosage: 2 DF, QD
  15. SIMVASTATIN [Concomitant]
     Indication: BLOOD CHOLESTEROL INCREASED
     Dosage: 10 MG, QD
  16. PROTONIX /01263201/ [Concomitant]
     Indication: DRUG USE FOR UNKNOWN INDICATION
     Dosage: 40 MG, QD

REACTIONS (1)
  - CONVULSION [None]
